FAERS Safety Report 26114472 (Version 1)
Quarter: 2025Q4

REPORT INFORMATION
  Report Type: Spontaneous
  Country: CN (occurrence: CN)
  Receive Date: 20251202
  Receipt Date: 20251202
  Transmission Date: 20260117
  Serious: Yes (Other)
  Sender: SUNOVION
  Company Number: CN-SMPA-2025SMP010084

PATIENT
  Age: 33 Year
  Sex: Female
  Weight: 64.9 kg

DRUGS (6)
  1. LATUDA [Suspect]
     Active Substance: LURASIDONE HYDROCHLORIDE
     Indication: Acute psychosis
     Dosage: 40 MG, QD
     Route: 048
     Dates: start: 20251022
  2. BLONANSERIN [Suspect]
     Active Substance: BLONANSERIN
     Indication: Acute psychosis
     Dosage: 4 MG, BID
     Route: 048
     Dates: start: 20251104, end: 20251105
  3. BLONANSERIN [Suspect]
     Active Substance: BLONANSERIN
     Dosage: UNK, BID
     Route: 048
     Dates: start: 20251106, end: 20251108
  4. BLONANSERIN [Suspect]
     Active Substance: BLONANSERIN
     Dosage: 8 MG, BID
     Route: 048
     Dates: start: 20251109
  5. Tai lun zuo [Concomitant]
     Dosage: UNK
     Dates: start: 20251028, end: 20251101
  6. CLONAZEPAM [Concomitant]
     Active Substance: CLONAZEPAM
     Dosage: UNK

REACTIONS (4)
  - Restless legs syndrome [Unknown]
  - Drug ineffective for unapproved indication [Unknown]
  - Product use in unapproved indication [Unknown]
  - Product use in unapproved indication [Unknown]

NARRATIVE: CASE EVENT DATE: 20251022
